FAERS Safety Report 21246260 (Version 1)
Quarter: 2022Q3

REPORT INFORMATION
  Report Type: Spontaneous
  Country: CA (occurrence: CA)
  Receive Date: 20220824
  Receipt Date: 20220824
  Transmission Date: 20221027
  Serious: Yes (Other)
  Sender: FDA-Public Use
  Company Number: CA-TEVA-2022-CA-2067128

PATIENT
  Age: 30 Year
  Sex: Male

DRUGS (8)
  1. CLOBAZAM [Suspect]
     Active Substance: CLOBAZAM
     Indication: Seizure
     Route: 065
  2. LACOSAMIDE [Suspect]
     Active Substance: LACOSAMIDE
     Indication: Seizure
     Route: 065
  3. LEVETIRACETAM [Suspect]
     Active Substance: LEVETIRACETAM
     Indication: Seizure
     Route: 065
  4. LEVETIRACETAM [Suspect]
     Active Substance: LEVETIRACETAM
     Dosage: FREQUENCY TIME :  EVERY 12 HOURS
     Route: 065
  5. FYCOMPA [Suspect]
     Active Substance: PERAMPANEL
     Indication: Seizure
     Dosage: FREQUENCY TIME : EVERY 1 DAYS
     Route: 048
  6. OXCARBAZEPINE [Suspect]
     Active Substance: OXCARBAZEPINE
     Indication: Seizure
     Dosage: FREQUENCY TIME :  EVERY 12 HOURS
     Route: 065
  7. PRIMIDONE [Suspect]
     Active Substance: PRIMIDONE
     Indication: Seizure
     Dosage: FREQUENCY TIME :  EVERY 12 HOURS
     Route: 065
  8. PRIMIDONE [Suspect]
     Active Substance: PRIMIDONE
     Dosage: FREQUENCY TIME : EVERY 1 DAYS
     Route: 065

REACTIONS (4)
  - Focal dyscognitive seizures [Unknown]
  - Generalised tonic-clonic seizure [Unknown]
  - Multiple-drug resistance [Unknown]
  - Partial seizures [Unknown]
